FAERS Safety Report 13941071 (Version 1)
Quarter: 2017Q3

REPORT INFORMATION
  Report Type: Spontaneous
  Country: US (occurrence: US)
  Receive Date: 20170906
  Receipt Date: 20170906
  Transmission Date: 20171127
  Serious: No
  Sender: FDA-Public Use
  Company Number: US-BIOGEN-2017BI00452969

PATIENT
  Sex: Female

DRUGS (2)
  1. TECFIDERA [Suspect]
     Active Substance: DIMETHYL FUMARATE
     Indication: MULTIPLE SCLEROSIS
     Dosage: PATIENT STARTED THERAPY ABOUT 2 YEARS AGO
     Route: 065
  2. TECFIDERA [Suspect]
     Active Substance: DIMETHYL FUMARATE
     Dosage: RESTARTED THERAPY (ONLY ABOUT 2 WEEKS AGO)
     Route: 065
     Dates: start: 201708

REACTIONS (6)
  - Abdominal discomfort [Not Recovered/Not Resolved]
  - Flushing [Recovered/Resolved]
  - Fatigue [Not Recovered/Not Resolved]
  - Weight decreased [Not Recovered/Not Resolved]
  - White blood cell count decreased [Recovered/Resolved]
  - Diarrhoea [Not Recovered/Not Resolved]
